FAERS Safety Report 4421127-4 (Version None)
Quarter: 2004Q3

REPORT INFORMATION
  Report Type: 
  Country: None (occurrence: None)
  Receive Date: 20040804
  Receipt Date: 20040722
  Transmission Date: 20050211
  Serious: No
  Sender: FDA-Public Use
  Company Number: 2004UW15497

PATIENT
  Age: 36 Year
  Sex: Male
  Weight: 124.7392 kg

DRUGS (4)
  1. SEROQUEL [Suspect]
     Indication: MANIA
     Dosage: 100 MG QD PO
     Route: 048
     Dates: start: 20040719, end: 20040719
  2. SEROQUEL [Suspect]
     Indication: MANIA
     Dosage: 25 MG QD PO
     Route: 048
     Dates: start: 20040721
  3. ATIVAN [Suspect]
     Dates: start: 20040719, end: 20040719
  4. DEPAKOTE [Concomitant]

REACTIONS (3)
  - COMA [None]
  - SENSORY DISTURBANCE [None]
  - SOMNOLENCE [None]
